FAERS Safety Report 19306363 (Version 1)
Quarter: 2021Q2

REPORT INFORMATION
  Report Type: Spontaneous
  Country: FI (occurrence: FI)
  Receive Date: 20210525
  Receipt Date: 20210525
  Transmission Date: 20210717
  Serious: Yes (Other)
  Sender: FDA-Public Use
  Company Number: FI-BAUSCH-BL-2021-017664

PATIENT
  Age: 68 Year
  Sex: Female

DRUGS (6)
  1. EMPLICITI [Suspect]
     Active Substance: ELOTUZUMAB
     Indication: PLASMA CELL MYELOMA
     Route: 065
     Dates: start: 20201016
  2. POMALIDOMIDE [Suspect]
     Active Substance: POMALIDOMIDE
     Indication: PLASMA CELL MYELOMA
     Route: 065
  3. IMNOVID [Suspect]
     Active Substance: POMALIDOMIDE
     Indication: PLASMA CELL MYELOMA
     Dosage: 3MG ONCE DAILY (CYCLE D1?D21).
     Route: 065
  4. DEXAMETHASON [DEXAMETHASONE] [Suspect]
     Active Substance: DEXAMETHASONE
     Indication: PLASMA CELL MYELOMA
     Route: 065
  5. EMPLICITI [Suspect]
     Active Substance: ELOTUZUMAB
     Dosage: 480MG IN DAYS 1, 8, 15 AND 22
     Route: 065
     Dates: start: 202008
  6. IMNOVID [Suspect]
     Active Substance: POMALIDOMIDE
     Route: 065
     Dates: start: 202008

REACTIONS (3)
  - Muscle spasms [Unknown]
  - Erythema [Recovered/Resolved]
  - Cytomegalovirus infection [Recovered/Resolved]
